FAERS Safety Report 26047669 (Version 1)
Quarter: 2025Q4

REPORT INFORMATION
  Report Type: Spontaneous
  Country: EU (occurrence: EU)
  Receive Date: 20251114
  Receipt Date: 20251114
  Transmission Date: 20260118
  Serious: Yes (Life-Threatening)
  Sender: MYLAN
  Company Number: None

PATIENT
  Age: 58 Year
  Sex: Male

DRUGS (20)
  1. ALPRAZOLAM [Suspect]
     Active Substance: ALPRAZOLAM
     Indication: Poisoning deliberate
     Dosage: 15 MILLIGRAM, 1 TOTAL
     Dates: start: 20250821
  2. ALPRAZOLAM [Suspect]
     Active Substance: ALPRAZOLAM
     Dosage: 15 MILLIGRAM, 1 TOTAL
     Route: 048
     Dates: start: 20250821
  3. ALPRAZOLAM [Suspect]
     Active Substance: ALPRAZOLAM
     Dosage: 15 MILLIGRAM, 1 TOTAL
     Route: 048
     Dates: start: 20250821
  4. ALPRAZOLAM [Suspect]
     Active Substance: ALPRAZOLAM
     Dosage: 15 MILLIGRAM, 1 TOTAL
     Dates: start: 20250821
  5. ZOPICLONE [Suspect]
     Active Substance: ZOPICLONE
     Indication: Poisoning deliberate
     Dosage: 420 MILLIGRAM, 1 TOTAL
     Dates: start: 20250821
  6. ZOPICLONE [Suspect]
     Active Substance: ZOPICLONE
     Dosage: 420 MILLIGRAM, 1 TOTAL
     Route: 048
     Dates: start: 20250821
  7. ZOPICLONE [Suspect]
     Active Substance: ZOPICLONE
     Dosage: 420 MILLIGRAM, 1 TOTAL
     Route: 048
     Dates: start: 20250821
  8. ZOPICLONE [Suspect]
     Active Substance: ZOPICLONE
     Dosage: 420 MILLIGRAM, 1 TOTAL
     Dates: start: 20250821
  9. BROMAZEPAM [Suspect]
     Active Substance: BROMAZEPAM
     Indication: Poisoning deliberate
     Dosage: 360 MILLIGRAM, 1 TOTAL
     Dates: start: 20250821
  10. BROMAZEPAM [Suspect]
     Active Substance: BROMAZEPAM
     Dosage: 360 MILLIGRAM, 1 TOTAL
     Route: 048
     Dates: start: 20250821
  11. BROMAZEPAM [Suspect]
     Active Substance: BROMAZEPAM
     Dosage: 360 MILLIGRAM, 1 TOTAL
     Route: 048
     Dates: start: 20250821
  12. BROMAZEPAM [Suspect]
     Active Substance: BROMAZEPAM
     Dosage: 360 MILLIGRAM, 1 TOTAL
     Dates: start: 20250821
  13. LORAZEPAM [Suspect]
     Active Substance: LORAZEPAM
     Indication: Poisoning deliberate
     Dosage: 150 MILLIGRAM, 1 TOTAL
     Dates: start: 20250821
  14. LORAZEPAM [Suspect]
     Active Substance: LORAZEPAM
     Dosage: 150 MILLIGRAM, 1 TOTAL
     Route: 048
     Dates: start: 20250821
  15. LORAZEPAM [Suspect]
     Active Substance: LORAZEPAM
     Dosage: 150 MILLIGRAM, 1 TOTAL
     Route: 048
     Dates: start: 20250821
  16. LORAZEPAM [Suspect]
     Active Substance: LORAZEPAM
     Dosage: 150 MILLIGRAM, 1 TOTAL
     Dates: start: 20250821
  17. TAMSULOSIN [Suspect]
     Active Substance: TAMSULOSIN
     Indication: Poisoning deliberate
     Dosage: 3.2 MILLIGRAM, 1 TOTAL
     Dates: start: 20250821
  18. TAMSULOSIN [Suspect]
     Active Substance: TAMSULOSIN
     Dosage: 3.2 MILLIGRAM, 1 TOTAL
     Route: 048
     Dates: start: 20250821
  19. TAMSULOSIN [Suspect]
     Active Substance: TAMSULOSIN
     Dosage: 3.2 MILLIGRAM, 1 TOTAL
     Route: 048
     Dates: start: 20250821
  20. TAMSULOSIN [Suspect]
     Active Substance: TAMSULOSIN
     Dosage: 3.2 MILLIGRAM, 1 TOTAL
     Dates: start: 20250821

REACTIONS (2)
  - Poisoning deliberate [Recovered/Resolved]
  - Depressed level of consciousness [Recovered/Resolved]

NARRATIVE: CASE EVENT DATE: 20250821
